FAERS Safety Report 12435541 (Version 1)
Quarter: 2016Q2

REPORT INFORMATION
  Report Type: Spontaneous
  Country: US (occurrence: US)
  Receive Date: 20160603
  Receipt Date: 20160603
  Transmission Date: 20160815
  Serious: Yes (Life-Threatening, Hospitalization)
  Sender: FDA-Public Use
  Company Number: US-ROCHE-1619476

PATIENT
  Age: 2 Year
  Sex: Female
  Weight: 11.35 kg

DRUGS (1)
  1. KLONOPIN [Suspect]
     Active Substance: CLONAZEPAM
     Indication: PRODUCT USED FOR UNKNOWN INDICATION
     Dosage: 1-2 MG ONCE
     Route: 048
     Dates: start: 20150730

REACTIONS (7)
  - Sedation [Unknown]
  - Drooling [Unknown]
  - Accidental exposure to product [Unknown]
  - Coordination abnormal [Unknown]
  - Irritability [Unknown]
  - Balance disorder [Unknown]
  - Gait disturbance [Unknown]

NARRATIVE: CASE EVENT DATE: 20150730
